FAERS Safety Report 6904489-5 (Version None)
Quarter: 2010Q3

REPORT INFORMATION
  Report Type: 
  Country: None (occurrence: None)
  Receive Date: 20100804
  Receipt Date: 20090527
  Transmission Date: 20110219
  Serious: No
  Sender: FDA-Public Use
  Company Number: US-PFIZER INC-2009219749

PATIENT
  Sex: Male
  Weight: 93.893 kg

DRUGS (3)
  1. LYRICA [Suspect]
     Indication: EAR PAIN
     Dates: start: 20081201
  2. VALSARTAN [Concomitant]
  3. TYSABRI [Concomitant]

REACTIONS (10)
  - DISTURBANCE IN ATTENTION [None]
  - DIZZINESS [None]
  - FEELING DRUNK [None]
  - GAIT DISTURBANCE [None]
  - INSOMNIA [None]
  - MEMORY IMPAIRMENT [None]
  - MENTAL IMPAIRMENT [None]
  - SPEECH DISORDER [None]
  - VISION BLURRED [None]
  - WEIGHT DECREASED [None]
